FAERS Safety Report 7663297-0 (Version None)
Quarter: 2011Q3

REPORT INFORMATION
  Report Type: 
  Country: None (occurrence: None)
  Receive Date: 20110805
  Receipt Date: 20100815
  Transmission Date: 20111222
  Serious: No
  Sender: FDA-Public Use
  Company Number: US-ABBOTT-10P-163-0663984-00

PATIENT
  Sex: Female
  Weight: 83.99 kg

DRUGS (6)
  1. NIASPAN [Suspect]
  2. BLOOD PRESSURE MEDICATION [Concomitant]
     Indication: PRODUCT USED FOR UNKNOWN INDICATION
  3. ZOCOR [Concomitant]
     Indication: PRODUCT USED FOR UNKNOWN INDICATION
  4. NIASPAN [Suspect]
     Indication: HYPERLIPIDAEMIA
     Dates: start: 20100601, end: 20100801
  5. NIASPAN [Suspect]
     Dates: start: 20100801
  6. ASPIRIN [Concomitant]
     Indication: PRODUCT USED FOR UNKNOWN INDICATION

REACTIONS (4)
  - PRURITUS [None]
  - FLUSHING [None]
  - SKIN BURNING SENSATION [None]
  - PARAESTHESIA [None]
